FAERS Safety Report 9930722 (Version 1)
Quarter: 2014Q1

REPORT INFORMATION
  Report Type: Spontaneous
  Country: US (occurrence: US)
  Receive Date: 20140227
  Receipt Date: 20140227
  Transmission Date: 20141002
  Serious: No
  Sender: FDA-Public Use
  Company Number: US-AMGEN-USASP2014000269

PATIENT
  Age: 50 Year
  Sex: Female
  Weight: 111.11 kg

DRUGS (1)
  1. ENBREL [Suspect]
     Indication: RHEUMATOID ARTHRITIS
     Dosage: 50 MG, QW
     Route: 058
     Dates: start: 201311

REACTIONS (3)
  - Vision blurred [Unknown]
  - Arthritis [Unknown]
  - Eye swelling [Unknown]
